FAERS Safety Report 15696402 (Version 5)
Quarter: 2019Q1

REPORT INFORMATION
  Report Type: Report from Study
  Country: CA (occurrence: CA)
  Receive Date: 20181206
  Receipt Date: 20190212
  Transmission Date: 20190417
  Serious: Yes (Other)
  Sender: FDA-Public Use
  Company Number: CA-HLSUS-2018-CA-001680

PATIENT
  Age: 26 Year
  Sex: Female

DRUGS (12)
  1. D TABS [Concomitant]
     Dosage: 10000 IU / WEEK AT BEDTIME
  2. EMEND [Concomitant]
     Active Substance: APREPITANT
     Dosage: 125 MG CAPSULE - DAY 1 OF CHEMOTHERAPY, AND 80 MG ON DAYS 2 AND 3
  3. BISACODYL. [Concomitant]
     Active Substance: BISACODYL
     Dosage: 2 TABS ONCE A DAY AT BED TIME
  4. JAMP SENNA [Concomitant]
     Dosage: ONE TAB TWICE A DAY PRN
  5. DOCUSATE SODIUM. [Concomitant]
     Active Substance: DOCUSATE SODIUM
     Dosage: 100MG 2 CAPSULES TWICE A DAY IN THE MORNING AND AT BEDTIME
  6. LAX A DAY PHARMA [Concomitant]
     Dosage: 17 G DISSOLVED IN A GLASS OF WATER ONCE DAILY
  7. PROCHLORAZINE [Concomitant]
     Dosage: 1 TABLET PRN IF NAUSEA UP TO 4 TIMES A DAY
  8. FERROUS SULFATE. [Concomitant]
     Active Substance: FERROUS SULFATE
     Dosage: 300 MG 1 TAB ONCE A DAY AT BEDTIME
  9. ATIVAN [Concomitant]
     Active Substance: LORAZEPAM
  10. CLOZARIL [Suspect]
     Active Substance: CLOZAPINE
     Indication: SCHIZOPHRENIA
     Dosage: 300 MG AT BED TIME
     Route: 048
     Dates: start: 20140722
  11. FERROUS SULFATE. [Concomitant]
     Active Substance: FERROUS SULFATE
     Dosage: 300 MG 1 TABLET, AT BEDTIME THRICE WEEKLY
  12. VITAMIN C [Concomitant]
     Active Substance: ASCORBIC ACID
     Dosage: 1000 MG,  HALF TABLET AT BEDTIME THRICE WEEKLY

REACTIONS (9)
  - Fatigue [Unknown]
  - Somnolence [Unknown]
  - Pelvic mass [Unknown]
  - Constipation [Unknown]
  - Ulcer [Unknown]
  - Ureteric cancer [Unknown]
  - Weight decreased [Unknown]
  - Anaemia [Unknown]
  - Renal vein thrombosis [Unknown]
